FAERS Safety Report 25923981 (Version 2)
Quarter: 2025Q4

REPORT INFORMATION
  Report Type: Spontaneous
  Country: AU (occurrence: AU)
  Receive Date: 20251015
  Receipt Date: 20251209
  Transmission Date: 20260117
  Serious: Yes (Hospitalization, Disabling, Other)
  Sender: ORGANON
  Company Number: AU-MYLANLABS-2025M1067196

PATIENT
  Sex: Female

DRUGS (15)
  1. MIRTAZAPINE [Suspect]
     Active Substance: MIRTAZAPINE
     Indication: Product used for unknown indication
     Dosage: 45 MILLIGRAM, QD
  2. MIRTAZAPINE [Suspect]
     Active Substance: MIRTAZAPINE
     Dosage: 60 MILLIGRAM, QD
  3. MIRTAZAPINE [Suspect]
     Active Substance: MIRTAZAPINE
     Dosage: 30 MILLIGRAM, QD
  4. ARIPIPRAZOLE [Suspect]
     Active Substance: ARIPIPRAZOLE
     Indication: Hyperprolactinaemia
     Dosage: 2.5 MILLIGRAM
  5. ARIPIPRAZOLE [Suspect]
     Active Substance: ARIPIPRAZOLE
     Dosage: 400 MILLIGRAM, INJECTION
  6. ARIPIPRAZOLE [Suspect]
     Active Substance: ARIPIPRAZOLE
     Dosage: 5 MILLIGRAM, QD
     Dates: start: 202104
  7. PALIPERIDONE [Suspect]
     Active Substance: PALIPERIDONE
     Indication: Product used for unknown indication
     Dosage: 50 MILLIGRAM, QM
  8. PALIPERIDONE [Suspect]
     Active Substance: PALIPERIDONE
     Dosage: 50 MILLIGRAM, EVERY 4 WEEKS
  9. PALIPERIDONE [Suspect]
     Active Substance: PALIPERIDONE
     Dosage: 75 MILLIGRAM, QM
  10. PALIPERIDONE [Suspect]
     Active Substance: PALIPERIDONE
     Dosage: 200 MILLIGRAM, QW
     Dates: start: 2021
  11. PALIPERIDONE [Suspect]
     Active Substance: PALIPERIDONE
     Dosage: 300 MILLIGRAM, QW
     Dates: start: 2023
  12. PALIPERIDONE [Suspect]
     Active Substance: PALIPERIDONE
     Dosage: 200 MILLIGRAM, QW
     Dates: start: 2024, end: 20250509
  13. QUETIAPINE FUMARATE [Suspect]
     Active Substance: QUETIAPINE FUMARATE
     Dosage: 800 MILLIGRAM, QD
  14. QUETIAPINE FUMARATE [Suspect]
     Active Substance: QUETIAPINE FUMARATE
     Dosage: 800 MILLIGRAM, QD
  15. QUETIAPINE FUMARATE [Suspect]
     Active Substance: QUETIAPINE FUMARATE
     Dosage: 100MG AT NIGHT

REACTIONS (4)
  - Parkinson^s disease [Unknown]
  - Schizoaffective disorder [Unknown]
  - Depressive symptom [Unknown]
  - Extrapyramidal disorder [Unknown]

NARRATIVE: CASE EVENT DATE: 20210101
